FAERS Safety Report 18770646 (Version 2)
Quarter: 2021Q1

REPORT INFORMATION
  Report Type: Spontaneous
  Country: IT (occurrence: IT)
  Receive Date: 20210122
  Receipt Date: 20210203
  Transmission Date: 20210419
  Serious: Yes (Other)
  Sender: FDA-Public Use
  Company Number: IT-AUROBINDO-AUR-APL-2021-002502

PATIENT
  Age: 72 Year
  Sex: Female

DRUGS (2)
  1. MEROPENEM. [Suspect]
     Active Substance: MEROPENEM
     Indication: HEPATIC CYST INFECTION
     Dosage: 500 MILLIGRAM, ONCE A DAY
     Route: 065
     Dates: start: 20201104, end: 20201205
  2. TIGECYCLINE. [Suspect]
     Active Substance: TIGECYCLINE
     Indication: HEPATIC CYST INFECTION
     Dosage: 50 MILLIGRAM, ONCE A DAY
     Route: 065
     Dates: start: 20201104, end: 20201205

REACTIONS (4)
  - Thrombocytopenia [Recovered/Resolved]
  - Hepatic cyst [Recovered/Resolved]
  - Leukopenia [Recovered/Resolved]
  - Infected cyst [Recovered/Resolved]

NARRATIVE: CASE EVENT DATE: 20201205
